FAERS Safety Report 22314940 (Version 1)
Quarter: 2023Q2

REPORT INFORMATION
  Report Type: Spontaneous
  Country: CA (occurrence: CA)
  Receive Date: 20230512
  Receipt Date: 20230512
  Transmission Date: 20230722
  Serious: Yes (Other)
  Sender: FDA-Public Use
  Company Number: CA-FreseniusKabi-FK202306254

PATIENT

DRUGS (1)
  1. HYDROMORPHONE HYDROCHLORIDE [Suspect]
     Active Substance: HYDROMORPHONE HYDROCHLORIDE
     Indication: Product used for unknown indication
     Dosage: SOLUTION INTRAVENOUS?0.4 MILLIGRAM/MILLILITER
     Route: 042

REACTIONS (5)
  - Adverse drug reaction [Unknown]
  - Drug administered in wrong device [Unknown]
  - Incorrect product administration duration [Unknown]
  - Product dispensing error [Unknown]
  - Wrong product administered [Unknown]
